FAERS Safety Report 9708553 (Version 1)
Quarter: 2013Q4

REPORT INFORMATION
  Report Type: Other
  Country: US (occurrence: US)
  Receive Date: 20131125
  Receipt Date: 20131125
  Transmission Date: 20140711
  Serious: Yes (Disabling)
  Sender: FDA-Public Use
  Company Number: US-ENDO PHARMACEUTICALS INC.-PROP20120282

PATIENT
  Sex: Female

DRUGS (1)
  1. PROPOXYPHENE NAPSYLATE/ACETAMINOPHEN TABLETS [Suspect]
     Indication: PAIN
     Dosage: UNK
     Route: 048

REACTIONS (1)
  - Cardiovascular disorder [Not Recovered/Not Resolved]
